FAERS Safety Report 18475841 (Version 1)
Quarter: 2020Q4

REPORT INFORMATION
  Report Type: Spontaneous
  Country: US (occurrence: US)
  Receive Date: 20201106
  Receipt Date: 20201106
  Transmission Date: 20210114
  Serious: No
  Sender: FDA-Public Use
  Company Number: US-PERRIGO-19US013135

PATIENT

DRUGS (2)
  1. DOXYLAMINE SUCCINATE. [Suspect]
     Active Substance: DOXYLAMINE SUCCINATE
     Dosage: 12.5 MG, SINGLE
     Route: 048
     Dates: start: 20191028, end: 20191028
  2. DOXYLAMINE SUCCINATE. [Suspect]
     Active Substance: DOXYLAMINE SUCCINATE
     Indication: INSOMNIA
     Dosage: 25 MG, SINGLE
     Route: 048
     Dates: start: 20191027, end: 20191027

REACTIONS (5)
  - Somnolence [Recovered/Resolved]
  - Underdose [Recovered/Resolved]
  - Irritability [Unknown]
  - Fatigue [Unknown]
  - Hallucination [Unknown]

NARRATIVE: CASE EVENT DATE: 20191027
